FAERS Safety Report 10379869 (Version 1)
Quarter: 2014Q1

REPORT INFORMATION
  Report Type: Spontaneous
  Country: US (occurrence: None)
  Receive Date: 20140306
  Receipt Date: 20140306
  Transmission Date: 20141002
  Serious: Yes (Other)
  Sender: FDA-Public Use
  Company Number: 163-21880-13090582

PATIENT
  Age: 73 Year
  Sex: Male
  Weight: 83.5 kg

DRUGS (27)
  1. REVLIMID (LENALIDOMIDE) (25 MILLIGRAM, CAPSULES) [Suspect]
     Indication: PLASMA CELL MYELOMA
     Route: 048
     Dates: start: 201101
  2. VELCADE (BORTEZOMIB) [Concomitant]
  3. DEXAMETHASONE [Concomitant]
  4. CYCLOPHOSPHAMIDE [Concomitant]
  5. FILGRASTIM [Concomitant]
  6. PLERIXAFOR [Concomitant]
  7. MELPHALAN [Concomitant]
  8. VANCOMYCIN [Concomitant]
  9. CEFEPIME [Concomitant]
  10. CARFILZOMIB [Concomitant]
  11. ACYCLOVIR (ACICLOVIR) (ACICLOVIR) [Concomitant]
  12. OMEPRAZOLE [Concomitant]
  13. GABAPENTIN [Concomitant]
  14. ACETAMINPHEN (PARACETAMOL) [Concomitant]
  15. CALCIUM CITRATE [Concomitant]
  16. MAGNESIUM [Concomitant]
  17. GLUCOSAMINE [Concomitant]
  18. LASIX (FUROSEMIDE) [Concomitant]
  19. OXYCODONE [Concomitant]
  20. LORAZEPAM [Concomitant]
  21. COMPAZINE (PROCHLORPERAZINE EDISYLATE) [Concomitant]
  22. CIPRO (CIPROFLOXACIN HYDROCHLORIDE) [Concomitant]
  23. MIRALAX (MACROGOL) [Concomitant]
  24. MSM (METHYLSULFONYLMETHANE) [Concomitant]
  25. VITAMIN C (ASCORBIC ACID) [Concomitant]
  26. VITAMIN D-2 (ERGOCALCIFEROL) [Concomitant]
  27. POMALIDOMIDE [Concomitant]

REACTIONS (3)
  - Renal failure [None]
  - Oedema peripheral [None]
  - No therapeutic response [None]
